FAERS Safety Report 4586157-0 (Version None)
Quarter: 2005Q1

REPORT INFORMATION
  Report Type: 
  Country: None (occurrence: None)
  Receive Date: 20050125
  Receipt Date: 20041018
  Transmission Date: 20050727
  Serious: No
  Sender: FDA-Public Use
  Company Number: USA041081514

PATIENT
  Age: 65 Year
  Sex: Female

DRUGS (7)
  1. FORTEO [Suspect]
     Indication: OSTEOPOROSIS
     Dates: start: 20040401, end: 20041011
  2. OXYCONTIN [Concomitant]
  3. OXYCODONE [Concomitant]
  4. NEURONTIN (GABAPENTIN PFIZER) [Concomitant]
  5. TEGRETOL (CARBAMAZEPINE RIVOPHARM) [Concomitant]
  6. HORMONE REPLACEMENT THERAPY [Concomitant]
  7. MIACALCIN [Concomitant]

REACTIONS (1)
  - CYSTITIS [None]
